FAERS Safety Report 7210757-2 (Version None)
Quarter: 2011Q1

REPORT INFORMATION
  Report Type: 
  Country: None (occurrence: None)
  Receive Date: 20110105
  Receipt Date: 20101223
  Transmission Date: 20110831
  Serious: Yes (Hospitalization)
  Sender: FDA-Public Use
  Company Number: IT-GENZYME-CLOF-1001328

PATIENT
  Sex: Male

DRUGS (2)
  1. ARACYTIN [Suspect]
     Indication: ACUTE MYELOID LEUKAEMIA
     Dosage: 2000 MG, QD
     Route: 042
     Dates: start: 20101105, end: 20101109
  2. EVOLTRA [Suspect]
     Indication: ACUTE MYELOID LEUKAEMIA
     Dosage: 40 MG, QD
     Route: 042
     Dates: start: 20101105, end: 20101108

REACTIONS (1)
  - HEPATITIS ACUTE [None]
